FAERS Safety Report 5628773-0 (Version None)
Quarter: 2008Q1

REPORT INFORMATION
  Report Type: 
  Country: None (occurrence: None)
  Receive Date: 20080215
  Receipt Date: 20080208
  Transmission Date: 20080703
  Serious: Yes (Other)
  Sender: FDA-Public Use
  Company Number: US-GENENTECH-255926

PATIENT
  Age: 83 Year
  Sex: Female

DRUGS (3)
  1. AVASTIN [Suspect]
     Indication: RETINAL HAEMORRHAGE
     Dosage: 1.25 MG, UNK
     Route: 031
  2. AVASTIN [Suspect]
     Indication: DETACHMENT OF RETINAL PIGMENT EPITHELIUM
  3. AVASTIN [Suspect]
     Indication: MACULAR DEGENERATION

REACTIONS (1)
  - DETACHMENT OF RETINAL PIGMENT EPITHELIUM [None]
